FAERS Safety Report 22389178 (Version 1)
Quarter: 2023Q2

REPORT INFORMATION
  Report Type: Spontaneous
  Country: HK (occurrence: HK)
  Receive Date: 20230531
  Receipt Date: 20230531
  Transmission Date: 20230722
  Serious: Yes (Hospitalization, Other)
  Sender: FDA-Public Use
  Company Number: HK-SUN PHARMACEUTICAL INDUSTRIES LTD-2023RR-391962

PATIENT
  Age: 14 Year
  Sex: Male

DRUGS (9)
  1. DIAZEPAM [Suspect]
     Active Substance: DIAZEPAM
     Indication: Acute kidney injury
     Dosage: UNK
     Route: 048
  2. DIAZEPAM [Suspect]
     Active Substance: DIAZEPAM
     Indication: Rhabdomyolysis
  3. MORPHINE [Suspect]
     Active Substance: MORPHINE
     Indication: Acute kidney injury
     Dosage: 3 MILLIGRAM, Q6H
     Route: 048
  4. MORPHINE [Suspect]
     Active Substance: MORPHINE
     Indication: Rhabdomyolysis
  5. CLONIDINE [Suspect]
     Active Substance: CLONIDINE
     Indication: Acute kidney injury
     Dosage: 0.05 MILLIGRAM, Q6H
     Route: 048
  6. CLONIDINE [Suspect]
     Active Substance: CLONIDINE
     Indication: Rhabdomyolysis
  7. CHLORAL HYDRATE [Suspect]
     Active Substance: CHLORAL HYDRATE
     Indication: Rhabdomyolysis
     Dosage: 500 MILLIGRAM, DAILY
     Route: 048
  8. CHLORAL HYDRATE [Suspect]
     Active Substance: CHLORAL HYDRATE
     Indication: Acute kidney injury
  9. DEXMEDETOMIDINE [Concomitant]
     Active Substance: DEXMEDETOMIDINE
     Indication: Haemofiltration
     Dosage: STARTING DOSE OF 0.3?G/KG/HOUR
     Route: 065

REACTIONS (7)
  - Blood creatinine increased [Unknown]
  - Hyperphosphataemia [Unknown]
  - Metabolic acidosis [Unknown]
  - Sedation complication [Unknown]
  - Respiratory failure [Unknown]
  - Disease progression [Unknown]
  - Overdose [Unknown]
